FAERS Safety Report 8549062-0 (Version None)
Quarter: 2012Q3

REPORT INFORMATION
  Report Type: 
  Country: None (occurrence: None)
  Receive Date: 20120730
  Receipt Date: 20120723
  Transmission Date: 20120928
  Serious: No
  Sender: FDA-Public Use
  Company Number: US-PFIZER INC-2012178771

PATIENT
  Sex: Female

DRUGS (1)
  1. PRISTIQ [Suspect]
     Dosage: UNK
     Dates: start: 20120201, end: 20120201

REACTIONS (3)
  - DYSKINESIA [None]
  - MUSCLE SPASMS [None]
  - MUSCLE TWITCHING [None]
